FAERS Safety Report 7514197-8 (Version None)
Quarter: 2011Q2

REPORT INFORMATION
  Report Type: 
  Country: None (occurrence: None)
  Receive Date: 20110531
  Receipt Date: 20110519
  Transmission Date: 20111010
  Serious: Yes (Other)
  Sender: FDA-Public Use
  Company Number: CN-GILEAD-E2B_00001297

PATIENT
  Age: 44 Year
  Sex: Male

DRUGS (3)
  1. ENTECAVIR [Concomitant]
     Indication: HEPATITIS B
     Dates: start: 20110422
  2. HEPSERA [Suspect]
     Indication: HEPATITIS B
     Dosage: 10MG PER DAY
     Route: 048
     Dates: start: 20050101
  3. HEPTODIN [Suspect]
     Indication: HEPATITIS B
     Dosage: .1G PER DAY
     Route: 048
     Dates: start: 20050801, end: 20110422

REACTIONS (4)
  - BLOOD CREATINE PHOSPHOKINASE INCREASED [None]
  - TRANSAMINASES INCREASED [None]
  - ASTHENIA [None]
  - CACHEXIA [None]
